FAERS Safety Report 5794640-5 (Version None)
Quarter: 2008Q2

REPORT INFORMATION
  Report Type: 
  Country: None (occurrence: None)
  Receive Date: 20080627
  Receipt Date: 20080627
  Transmission Date: 20081010
  Serious: Yes (Hospitalization)
  Sender: FDA-Public Use
  Company Number: None

PATIENT
  Sex: Female
  Weight: 74.8435 kg

DRUGS (9)
  1. COREG [Suspect]
     Indication: CARDIAC DISORDER
     Dosage: 12.5 MG PO Q12H  PRIOR TO ADMISSION
     Route: 048
  2. PLAVIX [Concomitant]
  3. LIPITOR [Concomitant]
  4. IMIPRAMINE [Concomitant]
  5. ASPIRIN [Concomitant]
  6. PRANDIN [Concomitant]
  7. TIMOLOL MALEATE [Concomitant]
  8. BETIMOL [Concomitant]
  9. TOBRADEX [Concomitant]

REACTIONS (4)
  - FALL [None]
  - HUMERUS FRACTURE [None]
  - LOSS OF CONSCIOUSNESS [None]
  - SYNCOPE [None]
